FAERS Safety Report 23195142 (Version 1)
Quarter: 2023Q4

REPORT INFORMATION
  Report Type: Spontaneous
  Country: CN (occurrence: CN)
  Receive Date: 20231117
  Receipt Date: 20231117
  Transmission Date: 20240109
  Serious: Yes (Other)
  Sender: FDA-Public Use
  Company Number: CN-AMGEN-CHNSP2023194226

PATIENT
  Age: 76 Year
  Sex: Female

DRUGS (5)
  1. PROLIA [Suspect]
     Active Substance: DENOSUMAB
     Indication: Prophylaxis
     Dosage: 60 MILLIGRAM, Q6MO
     Route: 058
     Dates: start: 20230811
  2. VOGLIBOSE [Concomitant]
     Active Substance: VOGLIBOSE
  3. REPAGLINIDE [Concomitant]
     Active Substance: REPAGLINIDE
  4. METFORMIN [Concomitant]
     Active Substance: METFORMIN HYDROCHLORIDE
  5. LOSARTAN POTASSIUM [Concomitant]
     Active Substance: LOSARTAN POTASSIUM

REACTIONS (2)
  - Deafness [Unknown]
  - Fracture pain [Not Recovered/Not Resolved]

NARRATIVE: CASE EVENT DATE: 20230811
